FAERS Safety Report 6656707-9 (Version None)
Quarter: 2010Q1

REPORT INFORMATION
  Report Type: 
  Country: None (occurrence: None)
  Receive Date: 20100324
  Receipt Date: 20100308
  Transmission Date: 20100710
  Serious: Yes (Death, Hospitalization)
  Sender: FDA-Public Use
  Company Number: 2010AL001396

PATIENT
  Age: 40 Year
  Sex: Female
  Weight: 48.9885 kg

DRUGS (9)
  1. OXYCODONE HCL TABLETS (AMIDE) [Suspect]
     Dosage: 30 MG; PRN; PO
     Route: 048
     Dates: start: 20071024
  2. FENTANYL TRANSDERMAL SYSTEM,    R (ASALLC) [Suspect]
     Indication: NEOPLASM MALIGNANT
     Dosage: 225 MG, TOP
     Route: 061
     Dates: start: 20071121
  3. AXINITIB [Concomitant]
  4. CISTAPLATIN [Concomitant]
  5. SENNA [Concomitant]
  6. CITRACIL [Concomitant]
  7. DULCOLAX [Concomitant]
  8. LACTULOSE [Concomitant]
  9. GEMCITABINE [Concomitant]

REACTIONS (2)
  - CONSTIPATION [None]
  - MALIGNANT NEOPLASM PROGRESSION [None]
